FAERS Safety Report 20629457 (Version 2)
Quarter: 2022Q2

REPORT INFORMATION
  Report Type: Spontaneous
  Country: US (occurrence: US)
  Receive Date: 20220323
  Receipt Date: 20220517
  Transmission Date: 20220721
  Serious: Yes (Death, Other)
  Sender: FDA-Public Use
  Company Number: US-PFIZER INC-202200440596

PATIENT
  Age: 71 Year
  Sex: Female
  Weight: 49.433 kg

DRUGS (14)
  1. PAXLOVID [Suspect]
     Active Substance: NIRMATRELVIR\RITONAVIR
     Indication: COVID-19 treatment
     Dosage: TWO NIRMATRELVIR 150MG AND ONE RITONAVIR 100MG
     Route: 048
     Dates: start: 20220311, end: 20220316
  2. GABAPENTIN [Concomitant]
     Active Substance: GABAPENTIN
     Dosage: 300 MG, 4X/DAY
     Route: 048
     Dates: start: 20070101
  3. GABAPENTIN [Concomitant]
     Active Substance: GABAPENTIN
     Dosage: 400 MG, 4X/DAY
     Route: 048
     Dates: start: 20210805
  4. FAMOTIDINE [Concomitant]
     Active Substance: FAMOTIDINE
     Dosage: UNK, 1X/DAY
     Route: 048
     Dates: start: 20100101
  5. ONDANSETRON [Concomitant]
     Active Substance: ONDANSETRON
     Dosage: 8 MG, AS NEEDED
     Route: 048
     Dates: start: 20180101
  6. ONDANSETRON [Concomitant]
     Active Substance: ONDANSETRON
     Dosage: 8 MG, AS NEEDED (DISINTEGRATING, 1 TABLET DISPERSE FOUR TIMES DAILY, AS NEEDED)
     Route: 048
     Dates: start: 20210429
  7. PANTOPRAZOLE [Concomitant]
     Active Substance: PANTOPRAZOLE
     Dosage: 40 MG (EC TABLET)
     Route: 048
     Dates: start: 20180101
  8. PANTOPRAZOLE [Concomitant]
     Active Substance: PANTOPRAZOLE
     Dosage: 40 MG, 2X/DAY (EC TABLET)
     Route: 048
     Dates: start: 20220119
  9. RANITIDINE [Concomitant]
     Active Substance: RANITIDINE
     Dosage: 300 MG (EVERY 12 HOURS)
     Route: 048
  10. ESOMEPRAZOLE [Concomitant]
     Active Substance: ESOMEPRAZOLE
     Dosage: 300 MG, DAILY (BEFORE BREAK FAST)
  11. HYOSCYAMINE [Concomitant]
     Active Substance: HYOSCYAMINE
     Dosage: 0.125 MG (UNDER THE TONGUE)
     Route: 060
  12. METRONIDAZOLE [Concomitant]
     Active Substance: METRONIDAZOLE
     Dosage: 500 MG (1 TABLET BY MOUTH EVERY 8 DAYS)
     Route: 048
     Dates: start: 20220318
  13. CEFDINIR [Concomitant]
     Active Substance: CEFDINIR
     Dosage: UNK (TAKE 1 CAPSULE BY MOUTH EVERY 12 HOURS FOR 10 DAYS)
     Route: 048
     Dates: start: 20220318
  14. MIRALAX [Concomitant]
     Active Substance: POLYETHYLENE GLYCOL 3350
     Dosage: 17 G, DAILY (POWDER, 1 MEASURING SPOON ORAL DAILY)
     Route: 048

REACTIONS (17)
  - Drug ineffective [Fatal]
  - COVID-19 [Fatal]
  - Colitis [Fatal]
  - Cholecystitis [Fatal]
  - Cholestasis [Unknown]
  - Pulmonary congestion [Unknown]
  - Nausea [Unknown]
  - Gallbladder disorder [Unknown]
  - Cholelithiasis [Unknown]
  - White blood cell count increased [Unknown]
  - Aspartate aminotransferase increased [Unknown]
  - Blood bilirubin increased [Unknown]
  - Asthenia [Unknown]
  - Abdominal pain [Unknown]
  - Illness [Unknown]
  - Chest discomfort [Unknown]
  - Vomiting [Unknown]

NARRATIVE: CASE EVENT DATE: 20220301
